FAERS Safety Report 19021134 (Version 1)
Quarter: 2021Q1

REPORT INFORMATION
  Report Type: Spontaneous
  Country: FR (occurrence: FR)
  Receive Date: 20210317
  Receipt Date: 20210317
  Transmission Date: 20210420
  Serious: Yes (Other)
  Sender: FDA-Public Use
  Company Number: FR-AMNEAL PHARMACEUTICALS-2021-AMRX-00864

PATIENT
  Age: 36 Year
  Sex: Female

DRUGS (2)
  1. INFLIXIMAB [Concomitant]
     Active Substance: INFLIXIMAB
     Indication: COLITIS ULCERATIVE
     Dosage: UNK UNK, EVERY 6WK
     Route: 065
     Dates: end: 2018
  2. AZATHIOPRINE. [Suspect]
     Active Substance: AZATHIOPRINE
     Indication: COLITIS ULCERATIVE
     Dosage: 125 MILLIGRAM, DAILY (STOPPED AT 25WG)
     Route: 065
     Dates: end: 2018

REACTIONS (2)
  - Cholestasis of pregnancy [Recovered/Resolved]
  - Maternal exposure during pregnancy [Unknown]

NARRATIVE: CASE EVENT DATE: 2018
